FAERS Safety Report 6109495-9 (Version None)
Quarter: 2009Q1

REPORT INFORMATION
  Report Type: 
  Country: None (occurrence: None)
  Receive Date: 20090306
  Receipt Date: 20090306
  Transmission Date: 20090719
  Serious: Yes (Life-Threatening)
  Sender: FDA-Public Use
  Company Number: None

PATIENT
  Age: 1 Month
  Sex: Female
  Weight: 3.54 kg

DRUGS (1)
  1. METOCLOPRAMIDE 5MG/5ML [Suspect]
     Indication: GASTROOESOPHAGEAL REFLUX DISEASE
     Dosage: 0.3-0.6MG Q6H PO
     Route: 048
     Dates: start: 20081009, end: 20081016

REACTIONS (1)
  - METHAEMOGLOBINAEMIA [None]
